FAERS Safety Report 6898811-6 (Version None)
Quarter: 2010Q3

REPORT INFORMATION
  Report Type: 
  Country: None (occurrence: None)
  Receive Date: 20100802
  Receipt Date: 20071203
  Transmission Date: 20110219
  Serious: No
  Sender: FDA-Public Use
  Company Number: US-PFIZER INC-2007088445

PATIENT
  Sex: Female

DRUGS (2)
  1. LYRICA [Suspect]
     Indication: ARTHRITIS
     Dates: end: 20071101
  2. LYRICA [Suspect]
     Indication: FIBROMYALGIA

REACTIONS (2)
  - BURNING SENSATION [None]
  - PARAESTHESIA [None]
